FAERS Safety Report 8380240-X (Version None)
Quarter: 2012Q2

REPORT INFORMATION
  Report Type: 
  Country: None (occurrence: None)
  Receive Date: 20120523
  Receipt Date: 20120515
  Transmission Date: 20120825
  Serious: Yes (Other)
  Sender: FDA-Public Use
  Company Number: PHHY2011US02057

PATIENT
  Sex: Male
  Weight: 77 kg

DRUGS (6)
  1. AFINITOR [Suspect]
     Indication: TUBEROUS SCLEROSIS
     Dosage: 7.5 MG DAILY
     Route: 048
     Dates: start: 20101229
  2. MOUTHWASH [Concomitant]
  3. BENZALAMIDE [Concomitant]
     Dosage: 600 MG, BID
     Route: 048
  4. TOPAMAX [Concomitant]
     Dosage: 150 MG, BID
     Route: 048
  5. LAMICTAL [Concomitant]
     Dosage: 200 MG, TID
     Route: 048
  6. KLONOPIN [Concomitant]
     Dosage: 1.5 MG, HS
     Route: 048

REACTIONS (11)
  - SKIN LESION [None]
  - WEIGHT DECREASED [None]
  - LYMPHANGIOLEIOMYOMATOSIS [None]
  - STOMATITIS [None]
  - TOOTH DISORDER [None]
  - ORAL HERPES [None]
  - MOUTH ULCERATION [None]
  - PALLOR [None]
  - EMPHYSEMA [None]
  - MOOD ALTERED [None]
  - FLAT AFFECT [None]
